FAERS Safety Report 6151696-8 (Version None)
Quarter: 2009Q2

REPORT INFORMATION
  Report Type: 
  Country: None (occurrence: None)
  Receive Date: 20090410
  Receipt Date: 20090403
  Transmission Date: 20091009
  Serious: Yes (Disabling, Congenital Anomaly)
  Sender: FDA-Public Use
  Company Number: A0679382A

PATIENT
  Sex: Male

DRUGS (1)
  1. PAXIL CR [Suspect]
     Indication: DEPRESSION
     Dosage: 50MG PER DAY
     Dates: start: 20030401, end: 20031201

REACTIONS (3)
  - DIGEORGE'S SYNDROME [None]
  - DRUG EXPOSURE DURING PREGNANCY [None]
  - FALLOT'S TETRALOGY [None]
